FAERS Safety Report 23601036 (Version 1)
Quarter: 2024Q1

REPORT INFORMATION
  Report Type: Spontaneous
  Country: US (occurrence: US)
  Receive Date: 20240306
  Receipt Date: 20240306
  Transmission Date: 20240410
  Serious: Yes (Death)
  Sender: FDA-Public Use
  Company Number: US-AMGEN-USASP2024044252

PATIENT

DRUGS (4)
  1. BLINATUMOMAB [Suspect]
     Active Substance: BLINATUMOMAB
     Indication: B-cell type acute leukaemia
     Dosage: UNK
     Route: 065
  2. INOTUZUMAB OZOGAMICIN [Suspect]
     Active Substance: INOTUZUMAB OZOGAMICIN
     Indication: B-cell type acute leukaemia
     Dosage: 0.6 MILLIGRAM/SQ. METER (ON DAY 1 OF CYCLE 1)
     Route: 065
  3. INOTUZUMAB OZOGAMICIN [Suspect]
     Active Substance: INOTUZUMAB OZOGAMICIN
     Dosage: 0.3 MILLIGRAM/SQ. METER (ON DAY 8 OF CYCLE 1)
     Route: 065
  4. INOTUZUMAB OZOGAMICIN [Suspect]
     Active Substance: INOTUZUMAB OZOGAMICIN
     Dosage: 0.3 MILLIGRAM/SQ. METER (ON DAYS 1 AND 8 DURING CYCLES 2 TO 6 (28-DAY CYCLE FOR UP TO 6 CYCLES)
     Route: 065

REACTIONS (5)
  - Death [Fatal]
  - B-cell type acute leukaemia [Fatal]
  - Transplantation complication [Fatal]
  - Septic shock [Fatal]
  - Treatment failure [Unknown]
